FAERS Safety Report 5337147-1 (Version None)
Quarter: 2007Q2

REPORT INFORMATION
  Report Type: 
  Country: None (occurrence: None)
  Receive Date: 20070315
  Receipt Date: 20060803
  Transmission Date: 20071010
  Serious: Yes (Other)
  Sender: FDA-Public Use
  Company Number: PHEH2006US08807

PATIENT
  Age: 14 Year
  Sex: Female
  Weight: 45.4 kg

DRUGS (2)
  1. TRILEPTAL [Suspect]
     Indication: CONVULSION
     Dosage: 900 MG BID ORAL
     Route: 048
     Dates: start: 20031009
  2. MINOCYCLINE HCL [Suspect]
     Indication: ACNE
     Dosage: 100 MG BID ORAL
     Route: 048
     Dates: start: 20060618, end: 20060707

REACTIONS (3)
  - CONDITION AGGRAVATED [None]
  - CONVULSION [None]
  - HYPOPNOEA [None]
